FAERS Safety Report 23249388 (Version 1)
Quarter: 2023Q4

REPORT INFORMATION
  Report Type: Spontaneous
  Country: US (occurrence: US)
  Receive Date: 20231201
  Receipt Date: 20231201
  Transmission Date: 20240110
  Serious: No
  Sender: FDA-Public Use
  Company Number: US-drreddys-SPO/USA/23/0187676

PATIENT
  Age: 38 Year
  Sex: Male

DRUGS (5)
  1. PRAMIPEXOLE [Suspect]
     Active Substance: PRAMIPEXOLE
     Indication: Anhedonia
     Dosage: AT NIGHT
  2. PRAMIPEXOLE [Suspect]
     Active Substance: PRAMIPEXOLE
     Indication: Major depression
     Dosage: FURTHER INCREASED AT NIGHT
  3. PRAMIPEXOLE [Suspect]
     Active Substance: PRAMIPEXOLE
     Dosage: TITRATED UP TO 1.0 MG OVER THE COURSE OF A WEEK
  4. DULOXETINE [Concomitant]
     Active Substance: DULOXETINE
     Indication: Major depression
     Dosage: TITRATED
  5. DULOXETINE [Concomitant]
     Active Substance: DULOXETINE
     Indication: Anhedonia

REACTIONS (1)
  - Nausea [Unknown]
